FAERS Safety Report 16261743 (Version 2)
Quarter: 2019Q2

REPORT INFORMATION
  Report Type: Spontaneous
  Country: FR (occurrence: FR)
  Receive Date: 20190501
  Receipt Date: 20190523
  Transmission Date: 20190711
  Serious: Yes (Hospitalization, Other)
  Sender: FDA-Public Use
  Company Number: FR-PFIZER INC-2019187469

PATIENT
  Age: 93 Year
  Sex: Male
  Weight: 85 kg

DRUGS (5)
  1. ACETYLSALICYLIC ACID [Suspect]
     Active Substance: ASPIRIN
     Dosage: 75 MG, QD
     Route: 048
  2. APIXABAN [Suspect]
     Active Substance: APIXABAN
     Dosage: 10 MG, DAILY
     Route: 048
     Dates: start: 20181212
  3. RAMIPRIL. [Suspect]
     Active Substance: RAMIPRIL
     Dosage: 10 MG, QD
     Route: 048
  4. FUROSEMIDE. [Concomitant]
     Active Substance: FUROSEMIDE
     Dosage: 60 MG, QD
     Route: 048
  5. POTASSIUM [Concomitant]
     Active Substance: POTASSIUM
     Dosage: 1800 MG, QD
     Route: 048

REACTIONS (2)
  - Post procedural haematoma [Recovered/Resolved]
  - Hernia [Recovered/Resolved]

NARRATIVE: CASE EVENT DATE: 20190319
